FAERS Safety Report 5618959-3 (Version None)
Quarter: 2008Q1

REPORT INFORMATION
  Report Type: 
  Country: None (occurrence: None)
  Receive Date: 20080207
  Receipt Date: 20080129
  Transmission Date: 20080703
  Serious: Yes (Hospitalization)
  Sender: FDA-Public Use
  Company Number: US-SANOFI-SYNTHELABO-A03200706420

PATIENT
  Age: 60 Year
  Sex: Male

DRUGS (1)
  1. LEUPROLIDE ACETATE [Suspect]
     Indication: PROSTATE CANCER
     Route: 058

REACTIONS (12)
  - ASTHENIA [None]
  - BLINDNESS UNILATERAL [None]
  - CONFUSIONAL STATE [None]
  - CRANIAL NERVE PARALYSIS [None]
  - DISORIENTATION [None]
  - FATIGUE [None]
  - HEADACHE [None]
  - HYPOTENSION [None]
  - LETHARGY [None]
  - PITUITARY HAEMORRHAGE [None]
  - PYREXIA [None]
  - VOMITING [None]
